FAERS Safety Report 13281782 (Version 3)
Quarter: 2020Q3

REPORT INFORMATION
  Report Type: Spontaneous
  Country: US (occurrence: US)
  Receive Date: 20170301
  Receipt Date: 20200918
  Transmission Date: 20201102
  Serious: Yes (Other)
  Sender: FDA-Public Use
  Company Number: US-PFIZER INC-2017083727

PATIENT
  Age: 42 Year
  Sex: Male

DRUGS (1)
  1. LYRICA [Suspect]
     Active Substance: PREGABALIN
     Dosage: UNK

REACTIONS (5)
  - Pain in extremity [Unknown]
  - Burning sensation [Unknown]
  - Type 1 diabetes mellitus [Unknown]
  - Paraesthesia [Unknown]
  - Visual impairment [Unknown]

NARRATIVE: CASE EVENT DATE: 2005
